FAERS Safety Report 5713225-X (Version None)
Quarter: 2008Q2

REPORT INFORMATION
  Report Type: 
  Country: None (occurrence: None)
  Receive Date: 20080422
  Receipt Date: 19990505
  Transmission Date: 20081010
  Serious: Yes (Death)
  Sender: FDA-Public Use
  Company Number: US-ROCHE-105606

PATIENT
  Age: 76 Year
  Sex: Male

DRUGS (7)
  1. ISOTRETINOIN [Suspect]
     Route: 048
     Dates: start: 19980714, end: 19980714
  2. INTERFERON ALFA-2A [Suspect]
     Route: 058
     Dates: start: 19980714, end: 19980714
  3. CYTARABINE [Suspect]
     Route: 058
     Dates: start: 19980604, end: 19980622
  4. CYTARABINE [Suspect]
     Route: 058
     Dates: start: 19980707, end: 19980713
  5. HYDREA [Suspect]
     Route: 048
     Dates: start: 19980604, end: 19980622
  6. CASODEX [Concomitant]
  7. ATENOLOL [Concomitant]

REACTIONS (2)
  - DEATH [None]
  - STOMATITIS [None]
